FAERS Safety Report 15258621 (Version 2)
Quarter: 2018Q3

REPORT INFORMATION
  Report Type: Spontaneous
  Country: US (occurrence: US)
  Receive Date: 20180809
  Receipt Date: 20180821
  Transmission Date: 20181010
  Serious: No
  Sender: FDA-Public Use
  Company Number: US-009507513-1807USA010883

PATIENT
  Sex: Male
  Weight: 43.55 kg

DRUGS (4)
  1. ASMANEX [Suspect]
     Active Substance: MOMETASONE FUROATE
     Indication: ASTHMA
     Dosage: 1 PUFF ONCE A DAY
     Route: 055
     Dates: start: 20170206
  2. LEVOCETIRIZINE [Concomitant]
     Active Substance: LEVOCETIRIZINE
     Indication: RHINITIS ALLERGIC
     Dosage: 5 MG, DAILY DOSAGE
     Route: 048
     Dates: start: 2011
  3. ZANTAC [Concomitant]
     Active Substance: RANITIDINE HYDROCHLORIDE
     Indication: GASTROOESOPHAGEAL REFLUX DISEASE
     Dosage: 15 MG / 150 MG DAILY DOSE
     Route: 048
     Dates: start: 2011
  4. PROAIR HFA [Concomitant]
     Active Substance: ALBUTEROL SULFATE
     Indication: RESPIRATORY THERAPY
     Dosage: 108  / 2 PUFF EVERY FOUR HOURS ? AS NEEDED
     Route: 055
     Dates: start: 2011

REACTIONS (4)
  - Poor quality drug administered [Unknown]
  - Product physical consistency issue [Unknown]
  - Product quality issue [Unknown]
  - No adverse event [Unknown]
